FAERS Safety Report 15944181 (Version 2)
Quarter: 2019Q2

REPORT INFORMATION
  Report Type: Spontaneous
  Country: CN (occurrence: CN)
  Receive Date: 20190211
  Receipt Date: 20190614
  Transmission Date: 20190711
  Serious: Yes (Hospitalization)
  Sender: FDA-Public Use
  Company Number: CN-STRIDES ARCOLAB LIMITED-2019SP001071

PATIENT
  Age: 67 Year
  Sex: Male

DRUGS (8)
  1. OLANZAPINE. [Concomitant]
     Active Substance: OLANZAPINE
     Indication: VASCULAR DEMENTIA
     Dosage: 10 MG, BID
     Route: 048
  2. DONEPEZIL. [Suspect]
     Active Substance: DONEPEZIL
     Dosage: 5 MG, BID
     Route: 065
  3. OLANZAPINE. [Concomitant]
     Active Substance: OLANZAPINE
     Dosage: 10 MG, BID
     Route: 048
  4. ALPRAZOLAM. [Concomitant]
     Active Substance: ALPRAZOLAM
     Indication: ANXIETY
     Dosage: 0.4 MG, BID
     Route: 048
  5. OLANZAPINE. [Concomitant]
     Active Substance: OLANZAPINE
     Dosage: 5 MG, AT BED TIME
     Route: 048
  6. OLANZAPINE. [Concomitant]
     Active Substance: OLANZAPINE
     Dosage: 10 MG, BID
     Route: 048
  7. DONEPEZIL. [Suspect]
     Active Substance: DONEPEZIL
     Indication: VASCULAR DEMENTIA
     Dosage: 5 MG, AT BED TIME
     Route: 048
  8. CAPTOPRIL. [Concomitant]
     Active Substance: CAPTOPRIL
     Indication: HYPERTENSION
     Dosage: 12.5 MG, TID
     Route: 048

REACTIONS (13)
  - Extrapyramidal disorder [Recovered/Resolved]
  - Dysphagia [Recovered/Resolved]
  - Dysarthria [Recovered/Resolved]
  - Toe walking [Recovered/Resolved]
  - Conversion disorder [Recovered/Resolved]
  - Impaired self-care [Recovered/Resolved]
  - Tremor [Recovered/Resolved]
  - Trismus [Recovered/Resolved]
  - Movement disorder [Recovered/Resolved]
  - Musculoskeletal stiffness [Recovered/Resolved]
  - Speech disorder [Recovered/Resolved]
  - Sluggishness [Recovered/Resolved]
  - Salivary hypersecretion [Recovered/Resolved]
